FAERS Safety Report 24985228 (Version 1)
Quarter: 2025Q1

REPORT INFORMATION
  Report Type: Spontaneous
  Country: RO (occurrence: RO)
  Receive Date: 20250219
  Receipt Date: 20250219
  Transmission Date: 20250409
  Serious: Yes (Other)
  Sender: AMGEN
  Company Number: RO-ROCHE-10000199210

PATIENT
  Age: 64 Year
  Sex: Female

DRUGS (5)
  1. TRASTUZUMAB [Suspect]
     Active Substance: TRASTUZUMAB
     Indication: HER2 positive breast cancer
     Route: 065
  2. PHESGO [Suspect]
     Active Substance: HYALURONIDASE-ZZXF\PERTUZUMAB\TRASTUZUMAB
     Indication: HER2 positive breast cancer
     Route: 065
     Dates: start: 202301, end: 202305
  3. KADCYLA [Suspect]
     Active Substance: ADO-TRASTUZUMAB EMTANSINE
     Indication: HER2 positive breast cancer
     Route: 065
     Dates: start: 202309, end: 202410
  4. DOCETAXEL [Suspect]
     Active Substance: DOCETAXEL
     Indication: HER2 positive breast cancer
     Route: 065
     Dates: start: 202301, end: 202305
  5. CARBOPLATIN [Suspect]
     Active Substance: CARBOPLATIN
     Indication: HER2 positive breast cancer
     Route: 065
     Dates: start: 202301, end: 202305

REACTIONS (8)
  - Polyneuropathy [Unknown]
  - Venous thrombosis limb [Unknown]
  - Lymphoedema [Unknown]
  - Axillary vein thrombosis [Unknown]
  - Asthenia [Unknown]
  - Interstitial lung disease [Unknown]
  - Depression [Unknown]
  - Diarrhoea [Unknown]
